FAERS Safety Report 16305773 (Version 4)
Quarter: 2022Q3

REPORT INFORMATION
  Report Type: Spontaneous
  Country: US (occurrence: None)
  Receive Date: 20190513
  Receipt Date: 20220909
  Transmission Date: 20221026
  Serious: Yes (Other)
  Sender: FDA-Public Use
  Company Number: 2019SE65615

PATIENT
  Age: 62 Year
  Sex: Female
  Weight: 87.5 kg

DRUGS (65)
  1. PRILOSEC [Suspect]
     Active Substance: OMEPRAZOLE MAGNESIUM
     Indication: Gastrooesophageal reflux disease
     Route: 048
  2. PRILOSEC [Suspect]
     Active Substance: OMEPRAZOLE MAGNESIUM
     Indication: Gastrooesophageal reflux disease
     Route: 048
     Dates: start: 2008, end: 2011
  3. PRILOSEC [Suspect]
     Active Substance: OMEPRAZOLE MAGNESIUM
     Indication: Gastrooesophageal reflux disease
     Dosage: GENERIC
     Route: 065
     Dates: start: 20130223, end: 20170724
  4. PRILOSEC [Suspect]
     Active Substance: OMEPRAZOLE MAGNESIUM
     Indication: Gastrooesophageal reflux disease
     Route: 048
     Dates: start: 2008, end: 2009
  5. PRILOSEC [Suspect]
     Active Substance: OMEPRAZOLE MAGNESIUM
     Indication: Gastrooesophageal reflux disease
     Dosage: GENERIC
     Route: 065
     Dates: start: 20091021, end: 20170724
  6. PRILOSEC OTC [Suspect]
     Active Substance: OMEPRAZOLE MAGNESIUM
     Indication: Gastrooesophageal reflux disease
     Route: 048
  7. PRILOSEC OTC [Suspect]
     Active Substance: OMEPRAZOLE MAGNESIUM
     Indication: Gastrooesophageal reflux disease
     Route: 048
     Dates: start: 20070828, end: 20120523
  8. PRILOSEC OTC [Suspect]
     Active Substance: OMEPRAZOLE MAGNESIUM
     Indication: Gastrooesophageal reflux disease
     Route: 048
     Dates: start: 20070828
  9. PRILOSEC OTC [Suspect]
     Active Substance: OMEPRAZOLE MAGNESIUM
     Indication: Gastrooesophageal reflux disease
     Route: 048
     Dates: start: 20070828, end: 20130205
  10. PANTOPRAZOLE [Suspect]
     Active Substance: PANTOPRAZOLE
     Indication: Gastrooesophageal reflux disease
     Dosage: GENERIC
     Route: 065
     Dates: start: 2020
  11. PANTOPRAZOLE [Suspect]
     Active Substance: PANTOPRAZOLE
     Indication: Gastrooesophageal reflux disease
     Dosage: GENERIC
     Route: 065
     Dates: start: 20210831
  12. AMLODIPINE [Concomitant]
     Active Substance: AMLODIPINE BESYLATE
     Indication: Hypertension
     Dates: start: 20190501, end: 20191103
  13. PREDNISONE [Concomitant]
     Active Substance: PREDNISONE
     Indication: Inflammation
     Dates: start: 20070303, end: 20190801
  14. FUROSEMIDE [Concomitant]
     Active Substance: FUROSEMIDE
     Indication: Diuretic therapy
     Route: 065
     Dates: start: 20171211, end: 20191015
  15. LEVOTHYROXINE [Concomitant]
     Active Substance: LEVOTHYROXINE
     Indication: Thyroid disorder
     Dates: start: 20081023, end: 20190910
  16. VENTOLIN [Concomitant]
     Active Substance: ALBUTEROL SULFATE
     Indication: Asthma
     Dates: start: 20070412, end: 20190320
  17. TYLENOL [Concomitant]
     Active Substance: ACETAMINOPHEN
     Indication: Arthralgia
     Route: 065
     Dates: start: 2015
  18. MOTRIN [Concomitant]
     Active Substance: IBUPROFEN
     Indication: Pain
     Route: 065
     Dates: start: 2004, end: 2015
  19. FAMOTIDINE [Concomitant]
     Active Substance: FAMOTIDINE
     Route: 065
     Dates: start: 20170724, end: 20170810
  20. RANITIDINE [Concomitant]
     Active Substance: RANITIDINE
     Route: 065
     Dates: start: 20070807, end: 20160531
  21. RANITIDINE [Concomitant]
     Active Substance: RANITIDINE
     Route: 065
     Dates: start: 2007
  22. RANITIDINE [Concomitant]
     Active Substance: RANITIDINE
     Route: 065
     Dates: start: 2016
  23. RANITIDINE [Concomitant]
     Active Substance: RANITIDINE
     Route: 065
     Dates: start: 20160531
  24. TUMS [Concomitant]
     Active Substance: CALCIUM CARBONATE
     Route: 065
     Dates: start: 2017
  25. ZITHROMAX [Concomitant]
     Active Substance: AZITHROMYCIN DIHYDRATE
  26. DELTASONE [Concomitant]
     Active Substance: PREDNISONE
  27. SINGULAIR [Concomitant]
     Active Substance: MONTELUKAST SODIUM
  28. DIFLUCAN [Concomitant]
     Active Substance: FLUCONAZOLE
  29. ZOLOFT [Concomitant]
     Active Substance: SERTRALINE HYDROCHLORIDE
  30. PRINIVIL [Concomitant]
     Active Substance: LISINOPRIL
  31. CARAFATE [Concomitant]
     Active Substance: SUCRALFATE
  32. PRAVACHOL [Concomitant]
     Active Substance: PRAVASTATIN SODIUM
  33. FLONASE [Concomitant]
     Active Substance: FLUTICASONE PROPIONATE
  34. ALLEGRA [Concomitant]
     Active Substance: FEXOFENADINE HYDROCHLORIDE
  35. MYCOLOG [Concomitant]
     Active Substance: GRAMICIDIN\NEOMYCIN SULFATE\NYSTATIN\TRIAMCINOLONE ACETONIDE
  36. ASMANEX [Concomitant]
     Active Substance: MOMETASONE FUROATE
  37. SUDAFED [Concomitant]
     Active Substance: PSEUDOEPHEDRINE HYDROCHLORIDE
  38. VITAMIN B12 [Concomitant]
     Active Substance: CYANOCOBALAMIN
  39. CELESTONE [Concomitant]
     Active Substance: BETAMETHASONE
  40. ERYTHROMYCIN [Concomitant]
     Active Substance: ERYTHROMYCIN
  41. CITALOPRAM [Concomitant]
     Active Substance: CITALOPRAM HYDROBROMIDE
  42. SYNTHROID [Concomitant]
     Active Substance: LEVOTHYROXINE SODIUM
  43. POTASSIUM CHLORIDE [Concomitant]
     Active Substance: POTASSIUM CHLORIDE
  44. SERTRALINE [Concomitant]
     Active Substance: SERTRALINE HYDROCHLORIDE
  45. ESTRACE [Concomitant]
     Active Substance: ESTRADIOL
  46. SUDOGEST [Concomitant]
     Active Substance: PSEUDOEPHEDRINE HYDROCHLORIDE
  47. FLUOROMETHOLONE [Concomitant]
     Active Substance: FLUOROMETHOLONE
  48. ULORIC [Concomitant]
     Active Substance: FEBUXOSTAT
  49. VALIUM [Concomitant]
     Active Substance: DIAZEPAM
  50. COLESTIPOL [Concomitant]
     Active Substance: COLESTIPOL
  51. CLEOCIN [Concomitant]
     Active Substance: CLINDAMYCIN PHOSPHATE
  52. LINEZOLID [Concomitant]
     Active Substance: LINEZOLID
  53. EUTHYROX [Concomitant]
     Active Substance: LEVOTHYROXINE SODIUM
  54. ELIQUIS [Concomitant]
     Active Substance: APIXABAN
  55. LEVALBUTEROL [Concomitant]
     Active Substance: LEVALBUTEROL
  56. BENADRYL [Concomitant]
     Active Substance: DIPHENHYDRAMINE HYDROCHLORIDE
     Indication: Hypersensitivity
     Dosage: AS NEEDED
     Route: 065
  57. CLARITHROMYCIN [Concomitant]
     Active Substance: CLARITHROMYCIN
  58. ALLOPURINOL [Concomitant]
     Active Substance: ALLOPURINOL
  59. COLCHICINE [Concomitant]
     Active Substance: COLCHICINE
  60. CHLORODIAZEPOXIDE [Concomitant]
  61. FEBUXOSTAT [Concomitant]
     Active Substance: FEBUXOSTAT
  62. FLECAINIDE [Concomitant]
     Active Substance: FLECAINIDE
  63. PAROXETINE [Concomitant]
     Active Substance: PAROXETINE
  64. DEXAMETHASONE [Concomitant]
     Active Substance: DEXAMETHASONE
  65. ESTRADIOL [Concomitant]
     Active Substance: ESTRADIOL

REACTIONS (5)
  - Acute kidney injury [Unknown]
  - Chronic kidney disease [Not Recovered/Not Resolved]
  - Nephrogenic anaemia [Unknown]
  - Fatigue [Unknown]
  - Gastrooesophageal reflux disease [Not Recovered/Not Resolved]

NARRATIVE: CASE EVENT DATE: 20140101
